FAERS Safety Report 17373372 (Version 1)
Quarter: 2020Q1

REPORT INFORMATION
  Report Type: Spontaneous
  Country: US (occurrence: US)
  Receive Date: 20200205
  Receipt Date: 20200205
  Transmission Date: 20200409
  Serious: No
  Sender: FDA-Public Use
  Company Number: US-ELI_LILLY_AND_COMPANY-US202002000509

PATIENT
  Age: 63 Year
  Sex: Female

DRUGS (3)
  1. CYCLOBENZAPRINE. [Concomitant]
     Active Substance: CYCLOBENZAPRINE
     Indication: MIGRAINE
     Dosage: 1 DOSAGE FORM, AT BEDTIME
     Route: 065
  2. EMGALITY [Suspect]
     Active Substance: GALCANEZUMAB-GNLM
     Indication: MIGRAINE
     Dosage: UNK, UNKNOWN
     Route: 065
     Dates: start: 20200111
  3. INDOMETHACIN [INDOMETACIN] [Concomitant]
     Active Substance: INDOMETHACIN
     Indication: MIGRAINE
     Dosage: 1 DOSAGE FORM, TID
     Route: 065

REACTIONS (1)
  - Headache [Unknown]

NARRATIVE: CASE EVENT DATE: 20200111
